FAERS Safety Report 4887580-7 (Version None)
Quarter: 2006Q1

REPORT INFORMATION
  Report Type: 
  Country: None (occurrence: None)
  Receive Date: 20060119
  Receipt Date: 20060119
  Transmission Date: 20060701
  Serious: No
  Sender: FDA-Public Use
  Company Number: None

PATIENT
  Age: 56 Year
  Sex: Male
  Weight: 86.637 kg

DRUGS (1)
  1. DAPSONE [Suspect]

REACTIONS (1)
  - HAEMOLYTIC ANAEMIA [None]
